FAERS Safety Report 11457789 (Version 1)
Quarter: 2015Q3

REPORT INFORMATION
  Report Type: Spontaneous
  Country: CH (occurrence: CH)
  Receive Date: 20150904
  Receipt Date: 20150904
  Transmission Date: 20151125
  Serious: Yes (Other)
  Sender: FDA-Public Use
  Company Number: PHHY2015CH104496

PATIENT
  Age: 73 Year
  Sex: Female

DRUGS (1)
  1. LETROZOLE. [Suspect]
     Active Substance: LETROZOLE
     Indication: BREAST CANCER METASTATIC
     Route: 065
     Dates: start: 201310, end: 201504

REACTIONS (8)
  - Malignant neoplasm progression [Unknown]
  - Femur fracture [Unknown]
  - Bone lesion [Unknown]
  - Fall [Unknown]
  - Metastases to spine [Unknown]
  - Metastases to bone [Unknown]
  - Breast cancer metastatic [Unknown]
  - Tumour marker increased [Unknown]

NARRATIVE: CASE EVENT DATE: 20140429
